FAERS Safety Report 17396401 (Version 1)
Quarter: 2020Q1

REPORT INFORMATION
  Report Type: Spontaneous
  Country: CZ (occurrence: CZ)
  Receive Date: 20200210
  Receipt Date: 20200210
  Transmission Date: 20200409
  Serious: Yes (Other)
  Sender: FDA-Public Use
  Company Number: CZ-PFIZER INC-2020049773

PATIENT
  Sex: Male

DRUGS (15)
  1. SORTIS [Suspect]
     Active Substance: ATORVASTATIN
     Dosage: 10 MG, 1X/DAY
  2. TREXAN [METHOTREXATE SODIUM] [Suspect]
     Active Substance: METHOTREXATE SODIUM
     Dosage: 2 DF, WEEKLY
  3. AMIODARONE [AMIODARONE HYDROCHLORIDE] [Suspect]
     Active Substance: AMIODARONE HYDROCHLORIDE
     Dosage: 200 MG
     Dates: end: 201604
  4. AMIODARONE [AMIODARONE HYDROCHLORIDE] [Suspect]
     Active Substance: AMIODARONE HYDROCHLORIDE
     Dosage: UNK, SATURATING DOSE
     Dates: start: 20170925, end: 20171214
  5. FOLIC ACID. [Concomitant]
     Active Substance: FOLIC ACID
     Dosage: UNK
  6. BISOPROLOL [Concomitant]
     Active Substance: BISOPROLOL
     Dosage: 0.5 DF, 1X/DAY
     Route: 065
     Dates: start: 20170515
  7. SPIRONOLACTONE. [Concomitant]
     Active Substance: SPIRONOLACTONE
     Dosage: 50 MG, 1X/DAY
  8. FURON [FUROSEMIDE] [Suspect]
     Active Substance: FUROSEMIDE
     Dosage: 40 MG, ONCE EVERY 2 WEEKS
  9. CARVEDILOL. [Concomitant]
     Active Substance: CARVEDILOL
     Dosage: 6.25 MG, 2X/DAY
  10. BISOPROLOL [Concomitant]
     Active Substance: BISOPROLOL
     Dosage: 1 DF, 1X/DAY
     Dates: start: 20170717
  11. APIXABAN [Concomitant]
     Active Substance: APIXABAN
     Dosage: 5 MG, 2X/DAY
  12. SPIRONOLACTONE. [Concomitant]
     Active Substance: SPIRONOLACTONE
     Dosage: 50 MG, 1X/DAY (AT NOON)
  13. FURON [FUROSEMIDE] [Suspect]
     Active Substance: FUROSEMIDE
     Dosage: 0.5 DF, 1X/DAY
     Dates: start: 20170403
  14. CARVEDILOL. [Concomitant]
     Active Substance: CARVEDILOL
     Dosage: 18.75 MG, DAILY (12.5 MG IN THE MORNING, 6.25 MG IN THE EVENING)
     Dates: start: 20170403, end: 20170515
  15. HYDROXYCHLOROQUINE [Concomitant]
     Active Substance: HYDROXYCHLOROQUINE
     Dosage: 1 DF, 1X/DAY

REACTIONS (3)
  - Mitral valve incompetence [Not Recovered/Not Resolved]
  - Respiratory rate increased [Unknown]
  - Sleep disorder [Unknown]

NARRATIVE: CASE EVENT DATE: 20170403
